FAERS Safety Report 4579497-2 (Version None)
Quarter: 2005Q1

REPORT INFORMATION
  Report Type: 
  Country: None (occurrence: None)
  Receive Date: 20050209
  Receipt Date: 20050204
  Transmission Date: 20050727
  Serious: Yes (Disabling, Other)
  Sender: FDA-Public Use
  Company Number: S03-FRA-01250-01

PATIENT
  Age: 21 Year
  Sex: Female

DRUGS (2)
  1. MONURIL (FOSFOMYCIN TROMETAMOL) [Suspect]
     Indication: PROPHYLAXIS
     Dosage: 3 G PO
     Route: 048
     Dates: start: 20010101
  2. MONURIL (FOSFOMYCIN TROMETAMOL) [Suspect]
     Indication: URINARY TRACT INFECTION
     Dosage: 3 G PO
     Route: 048
     Dates: start: 20010101

REACTIONS (2)
  - DEAFNESS [None]
  - OFF LABEL USE [None]
